FAERS Safety Report 15586743 (Version 1)
Quarter: 2018Q4

REPORT INFORMATION
  Report Type: Spontaneous
  Country: NL (occurrence: NL)
  Receive Date: 20181105
  Receipt Date: 20181105
  Transmission Date: 20190205
  Serious: Yes (Hospitalization)
  Sender: FDA-Public Use
  Company Number: NL-JNJFOC-20181037887

PATIENT
  Age: 72 Year
  Sex: Female
  Weight: 68 kg

DRUGS (12)
  1. OXYCONTIN [Interacting]
     Active Substance: OXYCODONE HYDROCHLORIDE
     Indication: PAIN
     Route: 065
     Dates: start: 2008
  2. PARACETAMOL [Concomitant]
     Active Substance: ACETAMINOPHEN
     Route: 065
  3. AMITRIPTYLINE [Interacting]
     Active Substance: AMITRIPTYLINE
     Indication: PRODUCT USED FOR UNKNOWN INDICATION
     Route: 065
     Dates: start: 2008, end: 20181008
  4. OMEPRAZOLE. [Concomitant]
     Active Substance: OMEPRAZOLE
     Route: 065
  5. CYANOCOBALAMIN. [Concomitant]
     Active Substance: CYANOCOBALAMIN
     Route: 065
  6. FENTANYL. [Suspect]
     Active Substance: FENTANYL
     Indication: PAIN
     Route: 065
     Dates: start: 2017, end: 201809
  7. OXYCONTIN [Interacting]
     Active Substance: OXYCODONE HYDROCHLORIDE
     Indication: PAIN
     Route: 065
  8. DIAZEPAM. [Interacting]
     Active Substance: DIAZEPAM
     Indication: ANXIETY
     Route: 065
     Dates: start: 2008
  9. NITROFURANTOINE [Concomitant]
     Active Substance: NITROFURANTOIN
     Dosage: 1 TIME PER DAY 2 BEFORE THE NIGHT
     Route: 065
  10. FOLIUMZUUR [Concomitant]
     Active Substance: FOLIC ACID
     Route: 065
  11. ACETYLSALICYLZUUR [Concomitant]
     Active Substance: ASPIRIN
     Route: 065
  12. CEFTRIAXON [Concomitant]
     Active Substance: CEFTRIAXONE
     Route: 065
     Dates: start: 20181001, end: 20181005

REACTIONS (3)
  - Delirium [Recovering/Resolving]
  - Drug interaction [Recovering/Resolving]
  - Normocytic anaemia [Not Recovered/Not Resolved]

NARRATIVE: CASE EVENT DATE: 20170918
